FAERS Safety Report 18036644 (Version 2)
Quarter: 2020Q3

REPORT INFORMATION
  Report Type: Spontaneous
  Country: DE (occurrence: DE)
  Receive Date: 20200717
  Receipt Date: 20200723
  Transmission Date: 20201103
  Serious: Yes (Other)
  Sender: FDA-Public Use
  Company Number: DE-BEH-2020119064

PATIENT
  Age: 55 Year
  Sex: Female
  Weight: 66 kg

DRUGS (10)
  1. HIZENTRA [Suspect]
     Active Substance: HUMAN IMMUNOGLOBULIN G
     Dosage: 10G/50 MILLILITER (6X50 ML PER MONTH)
     Route: 058
     Dates: start: 20200612
  2. HIZENTRA [Suspect]
     Active Substance: HUMAN IMMUNOGLOBULIN G
     Dosage: 10G/50 MILLILITER (6X50 ML PER MONTH)
     Route: 058
     Dates: start: 20200606
  3. HIZENTRA [Suspect]
     Active Substance: HUMAN IMMUNOGLOBULIN G
     Indication: CHRONIC INFLAMMATORY DEMYELINATING POLYRADICULONEUROPATHY
     Dosage: 10G/50 MILLILITER (6X50 ML PER MONTH)
     Route: 058
     Dates: start: 20200518
  4. HIZENTRA [Suspect]
     Active Substance: HUMAN IMMUNOGLOBULIN G
     Dosage: 10G/50 MILLILITER (6X50 ML PER MONTH)
     Route: 058
     Dates: start: 20200522
  5. HIZENTRA [Suspect]
     Active Substance: HUMAN IMMUNOGLOBULIN G
     Indication: AUTOIMMUNE NEUROPATHY
     Dosage: 10G/50 MILLILITER (6X50 ML PER MONTH)
     Route: 058
     Dates: start: 20200515
  6. HIZENTRA [Suspect]
     Active Substance: HUMAN IMMUNOGLOBULIN G
     Dosage: 10G/50 MILLILITER (6X50 ML PER MONTH)
     Route: 058
     Dates: start: 20200526
  7. HIZENTRA [Suspect]
     Active Substance: HUMAN IMMUNOGLOBULIN G
     Dosage: 10G/50 MILLILITER (6X50 ML PER MONTH)
     Route: 058
     Dates: start: 20200601
  8. HIZENTRA [Suspect]
     Active Substance: HUMAN IMMUNOGLOBULIN G
     Dosage: 10G/50 MILLILITER (6X50 ML PER MONTH)
     Route: 058
     Dates: start: 20200626
  9. HIZENTRA [Suspect]
     Active Substance: HUMAN IMMUNOGLOBULIN G
     Dosage: 10G/50 MILLILITER (6X50 ML PER MONTH)
     Route: 058
     Dates: start: 20200616
  10. HIZENTRA [Suspect]
     Active Substance: HUMAN IMMUNOGLOBULIN G
     Dosage: 10G/50 MILLILITER (6X50 ML PER MONTH)
     Route: 058
     Dates: start: 20200620

REACTIONS (75)
  - Asthenia [Unknown]
  - Tachycardia [Unknown]
  - Dyspnoea [Unknown]
  - Pain [Unknown]
  - Palpitations [Unknown]
  - Hypoaesthesia [Unknown]
  - Dysphagia [Unknown]
  - Cardiac disorder [Unknown]
  - Hypoaesthesia [Unknown]
  - Dry eye [Unknown]
  - Eye irritation [Unknown]
  - Injection site inflammation [Recovered/Resolved]
  - Infusion site mass [Recovered/Resolved]
  - Dyspnoea [Unknown]
  - Infusion site pain [Recovered/Resolved]
  - Injection site pruritus [Recovered/Resolved]
  - Muscle twitching [Unknown]
  - Visual impairment [Unknown]
  - Infusion site pruritus [Recovered/Resolved]
  - Dysphagia [Recovered/Resolved with Sequelae]
  - Cardiovascular disorder [Unknown]
  - Arthralgia [Unknown]
  - Injection site pain [Recovered/Resolved]
  - Dyspnoea [Unknown]
  - Asthenia [Unknown]
  - Infusion site pain [Recovered/Resolved]
  - Gait disturbance [Unknown]
  - Muscle twitching [Recovered/Resolved with Sequelae]
  - Muscle spasms [Not Recovered/Not Resolved]
  - Dizziness [Unknown]
  - Drug ineffective [Not Recovered/Not Resolved]
  - Pain [Unknown]
  - Arrhythmia [Unknown]
  - Infusion site pruritus [Recovered/Resolved]
  - Cerebrovascular accident [Unknown]
  - Musculoskeletal disorder [Unknown]
  - Arrhythmia [Unknown]
  - Cardiovascular disorder [Unknown]
  - Infusion site hypersensitivity [Recovered/Resolved]
  - Cardiovascular disorder [Unknown]
  - Depression [Unknown]
  - Infusion site reaction [Recovered/Resolved]
  - Pain [Unknown]
  - Infusion site erythema [Recovered/Resolved]
  - Dizziness [Unknown]
  - Nausea [Unknown]
  - Infusion site inflammation [Recovered/Resolved]
  - Fatigue [Unknown]
  - Injection site pain [Recovered/Resolved]
  - Cardiovascular disorder [Unknown]
  - Insomnia [Unknown]
  - Palpitations [Unknown]
  - Palpitations [Unknown]
  - Dyspnoea [Unknown]
  - Infusion site hypersensitivity [Recovered/Resolved]
  - Headache [Unknown]
  - Puncture site pain [Recovered/Resolved]
  - Insomnia [Unknown]
  - Dyspnoea [Recovered/Resolved]
  - Dizziness [Unknown]
  - Injection site pruritus [Recovered/Resolved]
  - Infusion site swelling [Recovered/Resolved]
  - Asthenia [Unknown]
  - Chest discomfort [Unknown]
  - Asthenia [Unknown]
  - Insomnia [Recovered/Resolved]
  - Cardiovascular disorder [Unknown]
  - Insomnia [Unknown]
  - Infusion site hypersensitivity [Recovered/Resolved]
  - Dizziness [Unknown]
  - Infusion site pain [Recovered/Resolved]
  - Dizziness [Unknown]
  - Nausea [Unknown]
  - Panic attack [Unknown]
  - Muscular weakness [Unknown]

NARRATIVE: CASE EVENT DATE: 202005
